FAERS Safety Report 8415257-X (Version None)
Quarter: 2012Q2

REPORT INFORMATION
  Report Type: 
  Country: None (occurrence: None)
  Receive Date: 20120606
  Receipt Date: 20120529
  Transmission Date: 20120825
  Serious: Yes (Hospitalization, Other)
  Sender: FDA-Public Use
  Company Number: CH-ELI_LILLY_AND_COMPANY-CH201205006821

PATIENT
  Age: 55 Year
  Sex: Female
  Weight: 65 kg

DRUGS (6)
  1. LANTUS [Interacting]
     Indication: TYPE 1 DIABETES MELLITUS
     Dosage: UNK UNK, PRN
     Route: 058
     Dates: start: 20120328, end: 20120421
  2. PRAVALOTIN MEPHA [Concomitant]
     Dosage: 40 MG, QD
     Route: 048
  3. DIOVAN [Concomitant]
     Dosage: 160 MG, QD
     Route: 048
  4. CITALOPRAM HYDROBROMIDE [Concomitant]
     Dosage: 20 MG, QD
     Route: 048
  5. PREDNISOLONE [Interacting]
     Indication: INJECTION SITE NECROSIS
     Dosage: 100 MG, QD
     Dates: start: 20120420, end: 20120421
  6. HUMALOG [Suspect]
     Indication: TYPE 1 DIABETES MELLITUS
     Dosage: UNK, PRN
     Route: 058
     Dates: start: 20120328, end: 20120421

REACTIONS (5)
  - HYPERGLYCAEMIA [None]
  - INJECTION SITE PAIN [None]
  - INJECTION SITE NECROSIS [None]
  - DRUG INTERACTION [None]
  - DIABETIC KETOACIDOSIS [None]
